FAERS Safety Report 23689988 (Version 1)
Quarter: 2024Q2

REPORT INFORMATION
  Report Type: Spontaneous
  Country: NO (occurrence: NO)
  Receive Date: 20240401
  Receipt Date: 20240401
  Transmission Date: 20240716
  Serious: Yes (Hospitalization, Other)
  Sender: FDA-Public Use
  Company Number: NO-MACLEODS PHARMACEUTICALS US LTD-MAC2024046590

PATIENT

DRUGS (3)
  1. CLOPIDOGREL [Suspect]
     Active Substance: CLOPIDOGREL BISULFATE
     Indication: Myocardial infarction
     Dosage: UNK
     Route: 065
  2. ASPIRIN [Suspect]
     Active Substance: ASPIRIN
     Indication: Myocardial infarction
     Dosage: UNK
     Route: 065
  3. DALTEPARIN [Suspect]
     Active Substance: DALTEPARIN
     Indication: Myocardial infarction
     Dosage: UNK
     Route: 065

REACTIONS (7)
  - Adrenal insufficiency [Recovered/Resolved]
  - Haemorrhagic adrenal infarction [Recovered/Resolved]
  - Renal infarct [Recovered/Resolved]
  - Aortic thrombosis [Recovered/Resolved]
  - Hepatic infarction [Recovered/Resolved]
  - Hepatic haemorrhage [Recovered/Resolved]
  - Renal haemorrhage [Recovered/Resolved]
